FAERS Safety Report 12391031 (Version 1)
Quarter: 2016Q2

REPORT INFORMATION
  Report Type: Report from Study
  Country: CH (occurrence: CH)
  Receive Date: 20160520
  Receipt Date: 20160520
  Transmission Date: 20160815
  Serious: Yes (Hospitalization)
  Sender: FDA-Public Use
  Company Number: CH-ABBVIE-16P-151-1631208-00

PATIENT
  Sex: Female

DRUGS (3)
  1. COMTAN [Concomitant]
     Active Substance: ENTACAPONE
     Indication: PRODUCT USED FOR UNKNOWN INDICATION
  2. DUODOPA [Suspect]
     Active Substance: CARBIDOPA\LEVODOPA
     Indication: PARKINSON^S DISEASE
     Dosage: MORNING DOSE: 7ML; CONTINUOUS DOSE: 2.7ML/H; EXTRA DOSE: 2ML
     Route: 050
     Dates: start: 20150803
  3. AMANTADIN [Suspect]
     Active Substance: AMANTADINE
     Indication: PRODUCT USED FOR UNKNOWN INDICATION
     Route: 042
     Dates: start: 20160513

REACTIONS (7)
  - Somnolence [Recovered/Resolved]
  - Pneumonia [Recovering/Resolving]
  - Disorientation [Recovered/Resolved]
  - Akinesia [Recovered/Resolved]
  - Pyrexia [Recovering/Resolving]
  - Psychomotor hyperactivity [Unknown]
  - Hallucination [Unknown]
